FAERS Safety Report 8907926 (Version 1)
Quarter: 2012Q4

REPORT INFORMATION
  Report Type: 
  Country: DE (occurrence: DE)
  Receive Date: 20121113
  Receipt Date: 20121113
  Transmission Date: 20130627
  Serious: Yes (Congenital Anomaly, Other)
  Sender: FDA-Public Use
  Company Number: DE-WATSON-2012-18946

PATIENT
  Sex: Male
  Weight: 4 kg

DRUGS (3)
  1. CITALOPRAM HYDROBROMIDE (UNKNOWN) [Suspect]
     Indication: DEPRESSION
     Dosage: ^60 [mg/d ]^ ]
     Route: 064
     Dates: start: 20110318, end: 20111219
  2. VIGIL [Suspect]
     Indication: NARCOLEPSY
     Dosage: 400 [mg/d ]
     Route: 064
     Dates: start: 20110318, end: 20111219
  3. BETAMETHASON                       /00008501/ [Concomitant]
     Indication: MATERNAL THERAPY TO ENHANCE FOETAL LUNG MATURITY
     Dosage: in gestational week 32
     Route: 064

REACTIONS (5)
  - Neonatal respiratory distress syndrome [Recovered/Resolved]
  - Drug withdrawal syndrome neonatal [Recovered/Resolved]
  - Patent ductus arteriosus [Unknown]
  - Atrial septal defect [Unknown]
  - Maternal drugs affecting foetus [None]
